FAERS Safety Report 16608657 (Version 7)
Quarter: 2021Q3

REPORT INFORMATION
  Report Type: Spontaneous
  Country: US (occurrence: US)
  Receive Date: 20190722
  Receipt Date: 20210728
  Transmission Date: 20211014
  Serious: No
  Sender: FDA-Public Use
  Company Number: US-PFIZER INC-2018235430

PATIENT
  Age: 62 Year
  Sex: Female

DRUGS (1)
  1. LYRICA [Suspect]
     Active Substance: PREGABALIN
     Indication: MULTIPLE SCLEROSIS
     Dosage: 300 MG, 2X/DAY
     Route: 048
     Dates: start: 20181210

REACTIONS (6)
  - Memory impairment [Unknown]
  - Confusional state [Unknown]
  - Off label use [Unknown]
  - Pruritus [Unknown]
  - Eczema [Unknown]
  - Hypoacusis [Unknown]
